FAERS Safety Report 9308043 (Version 1)
Quarter: 2013Q2

REPORT INFORMATION
  Report Type: Spontaneous
  Country: GR (occurrence: GR)
  Receive Date: 20130524
  Receipt Date: 20130524
  Transmission Date: 20140414
  Serious: Yes (Other)
  Sender: FDA-Public Use
  Company Number: GR-UCBSA-086182

PATIENT
  Age: 58 Year
  Sex: Female

DRUGS (1)
  1. CIMZIA [Suspect]
     Dosage: UNKNOWN DOSE
     Dates: start: 20130110

REACTIONS (2)
  - Hypertension [Unknown]
  - Arrhythmia [Unknown]
